FAERS Safety Report 24548748 (Version 6)
Quarter: 2025Q2

REPORT INFORMATION
  Report Type: Spontaneous
  Country: GB (occurrence: GB)
  Receive Date: 20241025
  Receipt Date: 20250625
  Transmission Date: 20250716
  Serious: Yes (Other)
  Sender: MYLAN
  Company Number: GB-MYLANLABS-2024M1096278

PATIENT
  Sex: Female

DRUGS (8)
  1. CLOZARIL [Suspect]
     Active Substance: CLOZAPINE
     Indication: Schizophrenia
  2. CLOZARIL [Suspect]
     Active Substance: CLOZAPINE
     Route: 048
  3. CLOZARIL [Suspect]
     Active Substance: CLOZAPINE
     Route: 048
  4. CLOZARIL [Suspect]
     Active Substance: CLOZAPINE
  5. CLOZAPINE [Suspect]
     Active Substance: CLOZAPINE
     Indication: Schizophrenia
  6. CLOZAPINE [Suspect]
     Active Substance: CLOZAPINE
     Route: 048
  7. CLOZAPINE [Suspect]
     Active Substance: CLOZAPINE
     Route: 048
  8. CLOZAPINE [Suspect]
     Active Substance: CLOZAPINE

REACTIONS (8)
  - Non-Hodgkin^s lymphoma [Unknown]
  - Neutropenia [Recovered/Resolved]
  - Thrombocytopenia [Recovered/Resolved]
  - White blood cell count decreased [Recovered/Resolved]
  - Platelet count increased [Recovered/Resolved]
  - White blood cell count increased [Recovered/Resolved]
  - Neutrophil count increased [Recovered/Resolved]
  - Off label use [Unknown]

NARRATIVE: CASE EVENT DATE: 20241028
